FAERS Safety Report 19087377 (Version 3)
Quarter: 2023Q4

REPORT INFORMATION
  Report Type: Spontaneous
  Country: US (occurrence: US)
  Receive Date: 20210402
  Receipt Date: 20231102
  Transmission Date: 20240109
  Serious: Yes (Hospitalization, Other)
  Sender: FDA-Public Use
  Company Number: US-TEVA-2021-US-1896730

PATIENT
  Age: 56 Year
  Sex: Male
  Weight: 127.91 kg

DRUGS (13)
  1. AMLODIPINE\VALSARTAN [Suspect]
     Active Substance: AMLODIPINE\VALSARTAN
     Indication: Hypertension
     Dosage: STRENGTH: 10/320 MG
     Route: 065
     Dates: start: 20150807, end: 20171009
  2. AMLODIPINE\VALSARTAN [Suspect]
     Active Substance: AMLODIPINE\VALSARTAN
     Dosage: STRENGTH: 10/320 MG
     Route: 065
     Dates: start: 20171128, end: 20180226
  3. AMLODIPINE\VALSARTAN [Suspect]
     Active Substance: AMLODIPINE\VALSARTAN
     Indication: Hypertension
     Dosage: 10-320MG
     Route: 065
     Dates: start: 20171031, end: 20171127
  4. AMLODIPINE\VALSARTAN [Suspect]
     Active Substance: AMLODIPINE\VALSARTAN
     Indication: Hypertension
     Dosage: STRENGTH: 10/320 MG
     Route: 065
     Dates: start: 20150619, end: 20150719
  5. AMLODIPINE\VALSARTAN [Suspect]
     Active Substance: AMLODIPINE\VALSARTAN
     Indication: Hypertension
     Dosage: 10-160MG EXFORGE
     Route: 065
     Dates: start: 20101230, end: 20110225
  6. AMLODIPINE\VALSARTAN [Suspect]
     Active Substance: AMLODIPINE\VALSARTAN
     Dosage: 10-320MG- EXFORGE
     Route: 065
     Dates: start: 20111005, end: 20150613
  7. BYSTOLIC [Concomitant]
     Active Substance: NEBIVOLOL HYDROCHLORIDE
     Indication: Hypertension
     Dosage: STRENGTH: 5 MG
     Route: 065
     Dates: start: 2008, end: 202001
  8. HYDRALAZINE [Concomitant]
     Active Substance: HYDRALAZINE HYDROCHLORIDE
     Indication: Hypertension
     Route: 065
  9. TAMSULOSIN HYDROCHLORIDE [Concomitant]
     Active Substance: TAMSULOSIN HYDROCHLORIDE
     Indication: Benign prostatic hyperplasia
     Route: 065
  10. ANDROGEL [Concomitant]
     Active Substance: TESTOSTERONE
     Indication: Blood testosterone decreased
     Dosage: 1.62% FOUR PUMPS DAILY
     Route: 065
  11. MELOXICAM [Concomitant]
     Active Substance: MELOXICAM
     Indication: Product used for unknown indication
     Route: 065
  12. ENALAPRIL MALEATE [Concomitant]
     Active Substance: ENALAPRIL MALEATE
     Indication: Product used for unknown indication
     Dosage: STRENGTH: 20 MG
     Route: 065
     Dates: start: 2008, end: 2018
  13. FLONASE [Concomitant]
     Active Substance: FLUTICASONE PROPIONATE
     Indication: Hypersensitivity
     Dosage: AS NEEDED
     Route: 065
     Dates: start: 2015, end: 2018

REACTIONS (2)
  - Small intestine carcinoma [Recovered/Resolved]
  - Abdominal hernia [Not Recovered/Not Resolved]

NARRATIVE: CASE EVENT DATE: 20230301
